FAERS Safety Report 6969496-5 (Version None)
Quarter: 2010Q3

REPORT INFORMATION
  Report Type: 
  Country: None (occurrence: None)
  Receive Date: 20100907
  Receipt Date: 20100907
  Transmission Date: 20110219
  Serious: Yes (Hospitalization)
  Sender: FDA-Public Use
  Company Number: None

PATIENT
  Sex: Male
  Weight: 106.4 kg

DRUGS (3)
  1. TEMOZOLOMIDE [Suspect]
     Dosage: 4620 MG
  2. CELEBREX [Suspect]
     Dosage: 16800 MG
  3. ISOTRETINOIN [Suspect]
     Dosage: 3780 MG

REACTIONS (1)
  - HERPES ZOSTER [None]
